FAERS Safety Report 5711292-0 (Version None)
Quarter: 2008Q2

REPORT INFORMATION
  Report Type: 
  Country: None (occurrence: None)
  Receive Date: 20080418
  Receipt Date: 20080418
  Transmission Date: 20081010
  Serious: Yes (Hospitalization)
  Sender: FDA-Public Use
  Company Number: None

PATIENT
  Age: 71 Year
  Sex: Male
  Weight: 73.84 kg

DRUGS (2)
  1. ENOXAPARIN SODIUM [Suspect]
     Indication: VASCULAR OPERATION
     Dosage: 80MG BID SQ
     Route: 058
     Dates: start: 20071016
  2. WARFARIN SODIUM [Suspect]
     Indication: VASCULAR OPERATION
     Dosage: 5MG EVERY DAY PO
     Route: 048
     Dates: start: 20071016, end: 20071030

REACTIONS (5)
  - ACTIVATED PARTIAL THROMBOPLASTIN TIME PROLONGED [None]
  - INCISION SITE HAEMORRHAGE [None]
  - INTERNATIONAL NORMALISED RATIO DECREASED [None]
  - WOUND HAEMORRHAGE [None]
  - WOUND SECRETION [None]
